FAERS Safety Report 22984433 (Version 7)
Quarter: 2024Q4

REPORT INFORMATION
  Report Type: Report from Study
  Country: IE (occurrence: IE)
  Receive Date: 20230926
  Receipt Date: 20241203
  Transmission Date: 20250114
  Serious: Yes (Death, Hospitalization, Other)
  Sender: TAKEDA
  Company Number: IE-TAKEDA-2022TUS002961

PATIENT
  Age: 66 Year
  Sex: Female

DRUGS (4)
  1. HUMAN IMMUNOGLOBULIN G\HYALURONIDASE RECOMBINANT HUMAN [Suspect]
     Active Substance: HUMAN IMMUNOGLOBULIN G\HYALURONIDASE (HUMAN RECOMBINANT)
     Indication: Chronic lymphocytic leukaemia
     Dosage: 25 GRAM, Q4WEEKS
     Dates: start: 20210406
  2. HUMAN IMMUNOGLOBULIN G\HYALURONIDASE RECOMBINANT HUMAN [Suspect]
     Active Substance: HUMAN IMMUNOGLOBULIN G\HYALURONIDASE (HUMAN RECOMBINANT)
     Dosage: 25 GRAM, MONTHLY
  3. HUMAN IMMUNOGLOBULIN G\HYALURONIDASE RECOMBINANT HUMAN [Suspect]
     Active Substance: HUMAN IMMUNOGLOBULIN G\HYALURONIDASE (HUMAN RECOMBINANT)
     Dosage: 25 GRAM, Q4WEEKS
  4. IBRUTINIB [Concomitant]
     Active Substance: IBRUTINIB
     Dosage: 420 MILLIGRAM, QD

REACTIONS (9)
  - Death [Fatal]
  - Fracture [Not Recovered/Not Resolved]
  - Bone cancer [Not Recovered/Not Resolved]
  - Chronic lymphocytic leukaemia [Not Recovered/Not Resolved]
  - Device infusion issue [Recovered/Resolved]
  - Swelling [Recovering/Resolving]
  - Off label use [Unknown]
  - Malaise [Unknown]
  - Illness [Not Recovered/Not Resolved]

NARRATIVE: CASE EVENT DATE: 20210406
